FAERS Safety Report 8929398 (Version 2)
Quarter: 2013Q3

REPORT INFORMATION
  Report Type: Spontaneous
  Country: US (occurrence: US)
  Receive Date: 20121127
  Receipt Date: 20130813
  Transmission Date: 20140515
  Serious: Yes (Hospitalization)
  Sender: FDA-Public Use
  Company Number: US-B.I. PHARMACEUTICALS,INC./RIDGEFIELD-2012-BI-01110BP

PATIENT
  Age: 79 Year
  Sex: Female

DRUGS (15)
  1. PRADAXA [Suspect]
     Indication: ATRIAL FIBRILLATION
     Dosage: 300 MG
     Route: 048
     Dates: start: 201007, end: 201207
  2. PRADAXA [Suspect]
     Dosage: 150 MG
     Route: 048
     Dates: start: 201207, end: 20121005
  3. PRADAXA [Suspect]
     Dosage: 150 MG
     Route: 048
     Dates: start: 20121019
  4. PRADAXA [Suspect]
     Dosage: 150 MG
     Route: 048
     Dates: start: 2011
  5. PRADAXA [Suspect]
     Dosage: 300 MG
     Route: 048
     Dates: start: 2011, end: 2011
  6. METOPROLOL XR [Concomitant]
     Indication: CARDIAC DISORDER
     Dosage: 25 MG
     Route: 048
  7. FLECANIDE [Concomitant]
     Indication: ARRHYTHMIA
     Dosage: 100 MG
     Route: 048
     Dates: start: 201007
  8. FLECANIDE [Concomitant]
     Indication: ATRIAL FIBRILLATION
     Dosage: 100 MG
     Route: 048
     Dates: start: 2011
  9. HYDROCHLOROTHIAZIDE [Concomitant]
     Indication: HYPERTENSION
     Dosage: 25 MG
     Route: 048
     Dates: start: 2010
  10. HYDROCHLOROTHIAZIDE [Concomitant]
     Indication: JOINT SWELLING
  11. PREVACID [Concomitant]
     Indication: GASTROOESOPHAGEAL REFLUX DISEASE
     Dosage: 30 MG
     Route: 048
     Dates: start: 2002
  12. PREVACID [Concomitant]
     Dosage: 1 ANZ
     Route: 048
     Dates: start: 2003
  13. LOSARTAN [Concomitant]
     Indication: HYPERTENSION
     Dosage: 75 MG
     Route: 048
     Dates: start: 2008
  14. TOPROL [Concomitant]
     Indication: HYPERTENSION
     Dosage: 25 MG
     Route: 048
     Dates: start: 2006
  15. LIPITOR [Concomitant]
     Indication: BLOOD CHOLESTEROL INCREASED
     Dosage: 10 MG
     Route: 048
     Dates: start: 2003

REACTIONS (3)
  - Haemoptysis [Recovered/Resolved]
  - Haemoptysis [Recovered/Resolved]
  - Bronchitis [Recovered/Resolved]
